FAERS Safety Report 9184738 (Version 7)
Quarter: 2015Q3

REPORT INFORMATION
  Report Type: Report from Study
  Country: CN (occurrence: CN)
  Receive Date: 20130324
  Receipt Date: 20150824
  Transmission Date: 20151125
  Serious: Yes (Death, Hospitalization, Other)
  Sender: FDA-Public Use
  Company Number: PHHY2013CN027505

PATIENT
  Age: 44 Year
  Sex: Male
  Weight: 51 kg

DRUGS (5)
  1. OMEPRAZOLE. [Concomitant]
     Active Substance: OMEPRAZOLE
     Indication: PROPHYLAXIS AGAINST GASTROINTESTINAL ULCER
     Dosage: 80 MG, QD
     Route: 048
     Dates: start: 20130202, end: 20130202
  2. MYFORTIC [Suspect]
     Active Substance: MYCOPHENOLATE SODIUM
     Indication: KIDNEY TRANSPLANT REJECTION
     Dosage: 2000 MG, QD
     Route: 048
     Dates: start: 20130111, end: 20130214
  3. LIPOFUNDIN [Concomitant]
     Active Substance: EGG PHOSPHOLIPIDS\GLYCERIN\SOYBEAN OIL
     Dosage: 150 ML QD
     Route: 048
     Dates: start: 20130202, end: 20130202
  4. LIPOFUNDIN [Concomitant]
     Active Substance: EGG PHOSPHOLIPIDS\GLYCERIN\SOYBEAN OIL
     Indication: PRODUCT USED FOR UNKNOWN INDICATION
     Dosage: 50 ML
     Route: 065
     Dates: start: 20130320
  5. OMEPRAZOLE. [Concomitant]
     Active Substance: OMEPRAZOLE
     Dosage: 80 MG, QD
     Route: 048
     Dates: start: 20130317

REACTIONS (12)
  - White blood cell count increased [Not Recovered/Not Resolved]
  - Pneumonia [Not Recovered/Not Resolved]
  - Lung infection [Unknown]
  - Dyspnoea [Not Recovered/Not Resolved]
  - Kidney transplant rejection [Unknown]
  - Hypoxic-ischaemic encephalopathy [Fatal]
  - Anoxia [Not Recovered/Not Resolved]
  - Acute kidney injury [Fatal]
  - Pneumonitis [Unknown]
  - Septic shock [Unknown]
  - Neutrophil count increased [Not Recovered/Not Resolved]
  - Pyrexia [Not Recovered/Not Resolved]

NARRATIVE: CASE EVENT DATE: 20130202
